FAERS Safety Report 9372824 (Version 1)
Quarter: 2013Q2

REPORT INFORMATION
  Report Type: Spontaneous
  Country: US (occurrence: US)
  Receive Date: 20130627
  Receipt Date: 20130627
  Transmission Date: 20140414
  Serious: No
  Sender: FDA-Public Use
  Company Number: US-B.I. PHARMACEUTICALS,INC./RIDGEFIELD-2013-BI-17960BP

PATIENT
  Sex: Male
  Weight: 91 kg

DRUGS (5)
  1. PRADAXA [Suspect]
     Indication: ATRIAL FIBRILLATION
     Dosage: 300 MG
     Route: 048
     Dates: start: 20130617
  2. MEGNESIUM [Concomitant]
     Indication: BLOOD MAGNESIUM DECREASED
     Dosage: 400 MG
     Route: 048
     Dates: start: 20130617
  3. BENADRYL [Concomitant]
     Indication: IDIOPATHIC ANGIOEDEMA
     Dosage: 50 MG
     Route: 048
  4. ALLEGRA [Concomitant]
     Indication: IDIOPATHIC ANGIOEDEMA
     Dosage: 180 MG
     Route: 048
  5. POTASSIUM [Concomitant]
     Indication: BLOOD POTASSIUM DECREASED
     Dosage: 20 MEQ
     Route: 048
     Dates: start: 20130617

REACTIONS (2)
  - Urticaria [Not Recovered/Not Resolved]
  - Insomnia [Recovered/Resolved]
